FAERS Safety Report 4807241-X (Version None)
Quarter: 2005Q4

REPORT INFORMATION
  Report Type: 
  Country: None (occurrence: None)
  Receive Date: 20051024
  Receipt Date: 20051017
  Transmission Date: 20060501
  Serious: Yes (Hospitalization)
  Sender: FDA-Public Use
  Company Number: 200517752US

PATIENT
  Sex: 0

DRUGS (2)
  1. KETEK [Suspect]
     Route: 048
  2. LIPITOR [Concomitant]

REACTIONS (1)
  - HEPATIC FAILURE [None]
